FAERS Safety Report 7432936-1 (Version None)
Quarter: 2011Q2

REPORT INFORMATION
  Report Type: 
  Country: None (occurrence: None)
  Receive Date: 20110422
  Receipt Date: 20110419
  Transmission Date: 20111010
  Serious: No
  Sender: FDA-Public Use
  Company Number: US-PFIZER INC-2009222897

PATIENT
  Sex: Female
  Weight: 72.562 kg

DRUGS (8)
  1. MULTI-VITAMINS [Concomitant]
     Dosage: UNK
  2. CHANTIX [Suspect]
     Dosage: 0.5 MG, 2X/DAY
     Route: 048
     Dates: start: 20090328, end: 20090331
  3. VITAMIN B-12 [Concomitant]
     Dosage: UNK
  4. CHANTIX [Suspect]
     Dosage: 1 MG, 2X/DAY
     Route: 048
     Dates: start: 20090401, end: 20090512
  5. CHANTIX [Suspect]
     Dosage: 1 MG DAILY
     Route: 048
     Dates: start: 20090513, end: 20090518
  6. CITRACAL + D [Concomitant]
     Dosage: UNK
  7. CHANTIX [Suspect]
     Indication: SMOKING CESSATION THERAPY
     Dosage: UNK
     Route: 048
     Dates: start: 20090318, end: 20090101
  8. CHANTIX [Suspect]
     Dosage: 0.5 MG, 1X/DAY
     Route: 048
     Dates: start: 20090325, end: 20090327

REACTIONS (6)
  - EUPHORIC MOOD [None]
  - CONFUSIONAL STATE [None]
  - FEELING ABNORMAL [None]
  - APATHY [None]
  - DYSGEUSIA [None]
  - DEPRESSION [None]
